FAERS Safety Report 18235657 (Version 3)
Quarter: 2022Q2

REPORT INFORMATION
  Report Type: Spontaneous
  Country: US (occurrence: US)
  Receive Date: 20200905
  Receipt Date: 20220520
  Transmission Date: 20220720
  Serious: No
  Sender: FDA-Public Use
  Company Number: US-SA-2020SA238158

PATIENT
  Sex: Female

DRUGS (8)
  1. DUPIXENT [Suspect]
     Active Substance: DUPILUMAB
     Indication: Asthma
     Dosage: 300 MG, QOW
     Route: 058
  2. DUPIXENT [Suspect]
     Active Substance: DUPILUMAB
     Indication: Pulmonary eosinophilia
  3. SINGULAIR [Concomitant]
     Active Substance: MONTELUKAST SODIUM
  4. PANTOPRAZOLE SODIUM [Concomitant]
     Active Substance: PANTOPRAZOLE SODIUM
  5. BUDESONIDE [Concomitant]
     Active Substance: BUDESONIDE
  6. BACLOFEN [Concomitant]
     Active Substance: BACLOFEN
  7. LORATADINE [Concomitant]
     Active Substance: LORATADINE
  8. BREO ELLIPTA [Concomitant]
     Active Substance: FLUTICASONE FUROATE\VILANTEROL TRIFENATATE

REACTIONS (5)
  - Injection site swelling [Unknown]
  - Injection site erythema [Unknown]
  - Device operational issue [Unknown]
  - Drug dose omission by device [Unknown]
  - Product use in unapproved indication [Unknown]
